FAERS Safety Report 11008913 (Version 2)
Quarter: 2015Q2

REPORT INFORMATION
  Report Type: Spontaneous
  Country: GB (occurrence: GB)
  Receive Date: 20150410
  Receipt Date: 20150420
  Transmission Date: 20150821
  Serious: Yes (Other)
  Sender: FDA-Public Use
  Company Number: GB-SUN PHARMACEUTICAL INDUSTRIES LTD-2015RR-95082

PATIENT

DRUGS (1)
  1. AMOXICILLIN. [Suspect]
     Active Substance: AMOXICILLIN
     Indication: OTITIS MEDIA ACUTE
     Dosage: 500 MG
     Route: 048
     Dates: start: 20150106, end: 20150106

REACTIONS (3)
  - Pruritus [Recovered/Resolved]
  - Choking sensation [Recovered/Resolved]
  - Urticaria [Recovered/Resolved]
